FAERS Safety Report 13449903 (Version 1)
Quarter: 2017Q2

REPORT INFORMATION
  Report Type: Spontaneous
  Country: US (occurrence: US)
  Receive Date: 20170417
  Receipt Date: 20170417
  Transmission Date: 20170830
  Serious: No
  Sender: FDA-Public Use
  Company Number: US-BION-20160243

PATIENT
  Age: 72 Year
  Sex: Male
  Weight: 95.25 kg

DRUGS (9)
  1. CENTRUM SILVER [Concomitant]
     Active Substance: MINERALS\VITAMINS
  2. ALEVE [Suspect]
     Active Substance: NAPROXEN SODIUM
     Indication: ARTHRALGIA
     Dosage: 1 DOSAGE FORM TAKEN TWICE DAILY
     Route: 048
  3. IVESARTAN [Concomitant]
  4. ASPIRIN. [Concomitant]
     Active Substance: ASPIRIN
  5. DUTASTERIDE. [Concomitant]
     Active Substance: DUTASTERIDE
  6. OSTEO BI-FLEX TRIPLE STRENGTH [Concomitant]
  7. ATORBASTATIN [Concomitant]
     Active Substance: ATORVASTATIN
  8. COENZYME Q10 [Concomitant]
     Active Substance: UBIDECARENONE
  9. METOPROLOL. [Concomitant]
     Active Substance: METOPROLOL

REACTIONS (3)
  - Product physical issue [Unknown]
  - Incorrect drug administration duration [Unknown]
  - Poor quality drug administered [Unknown]
